FAERS Safety Report 6737913 (Version 16)
Quarter: 2013Q3

REPORT INFORMATION
  Report Type: Spontaneous
  Country: US (occurrence: US)
  Receive Date: 20080827
  Receipt Date: 20130829
  Transmission Date: 20140515
  Serious: Yes (Death, Other)
  Sender: FDA-Public Use
  Company Number: PHEH2008US07357

PATIENT
  Age: 43 Year
  Sex: Female
  Weight: 69.39 kg

DRUGS (34)
  1. ZOMETA [Suspect]
     Dosage: 4 MG, QMO
     Route: 042
     Dates: start: 200507, end: 20070726
  2. ZOMETA [Suspect]
     Route: 042
     Dates: end: 2008
  3. CHEMOTHERAPEUTICS NOS [Concomitant]
  4. FEMARA [Concomitant]
  5. ROBAXIN [Concomitant]
  6. PERCOCET [Concomitant]
  7. MS CONTIN [Concomitant]
  8. ADVIL [Concomitant]
  9. DURAGESIC [Concomitant]
  10. FASLODEX [Concomitant]
     Dates: start: 200809
  11. ZOLADEX [Concomitant]
  12. BENADRYL ^ACHE^ [Concomitant]
  13. COMPAZINE [Concomitant]
  14. TYLENOL [Concomitant]
  15. SENOKOT-S [Concomitant]
  16. STOMATOLOGICALS, MOUTH PREPARATIONS [Concomitant]
  17. CALCIUM [Concomitant]
  18. VITAMIN D [Concomitant]
  19. CELEBREX [Concomitant]
  20. DECADRON                                /CAN/ [Concomitant]
  21. TAXOL [Concomitant]
  22. CARBOPLATIN [Concomitant]
  23. ARANESP [Concomitant]
  24. PROCRIT                            /00909301/ [Concomitant]
  25. OXYCONTIN [Concomitant]
  26. OXYCODONE [Concomitant]
  27. VITAMIN C [Concomitant]
  28. VITAMIN E [Concomitant]
  29. FISH OIL [Concomitant]
  30. VITAMIN B6 [Concomitant]
  31. VICODIN [Concomitant]
  32. FLAGYL [Concomitant]
  33. DIAZEPAM [Concomitant]
  34. MEPROZINE [Concomitant]

REACTIONS (57)
  - Death [Fatal]
  - Osteonecrosis of jaw [Unknown]
  - Pleural effusion [Unknown]
  - Fistula discharge [Unknown]
  - Weight decreased [Unknown]
  - Micturition urgency [Unknown]
  - Haematuria [Unknown]
  - Spinal compression fracture [Unknown]
  - General physical health deterioration [Unknown]
  - Pain [Unknown]
  - Anxiety [Unknown]
  - Dental caries [Unknown]
  - Pain in jaw [Unknown]
  - Paraesthesia oral [Unknown]
  - Swelling [Unknown]
  - Osteolysis [Unknown]
  - Bone loss [Unknown]
  - Gingival disorder [Unknown]
  - Back pain [Unknown]
  - Bone disorder [Unknown]
  - Loose tooth [Unknown]
  - Jaw fracture [Unknown]
  - Osteomyelitis [Unknown]
  - Gingivitis [Unknown]
  - Ovarian cyst [Unknown]
  - Spinal deformity [Unknown]
  - Hypoaesthesia [Unknown]
  - Anaemia [Unknown]
  - Osteopenia [Unknown]
  - Bundle branch block right [Unknown]
  - Hot flush [Unknown]
  - Plasma cell myeloma [Unknown]
  - Pulmonary fibrosis [Unknown]
  - Lymphadenopathy [Unknown]
  - Neuralgia [Unknown]
  - Decreased appetite [Unknown]
  - Metastases to bone [Unknown]
  - Palmar-plantar erythrodysaesthesia syndrome [Unknown]
  - Abscess jaw [Unknown]
  - Ascites [Recovered/Resolved]
  - Arteriosclerosis coronary artery [Unknown]
  - Insomnia [Unknown]
  - Neuropathy peripheral [Unknown]
  - Bone cyst [Unknown]
  - Hypomagnesaemia [Unknown]
  - Delirium [Unknown]
  - Metastases to central nervous system [Unknown]
  - Confusional state [Unknown]
  - Cellulitis [Unknown]
  - Amnesia [Unknown]
  - Gastrooesophageal reflux disease [Unknown]
  - Panic attack [Unknown]
  - Fall [Unknown]
  - Syncope [Unknown]
  - Ecchymosis [Unknown]
  - Dyspnoea [Unknown]
  - Tachycardia [Unknown]
